FAERS Safety Report 4285745-9 (Version None)
Quarter: 2004Q1

REPORT INFORMATION
  Report Type: 
  Country: None (occurrence: None)
  Receive Date: 20040203
  Receipt Date: 20040121
  Transmission Date: 20041129
  Serious: Yes (Hospitalization)
  Sender: FDA-Public Use
  Company Number: 2003US005608

PATIENT
  Age: 48 Year
  Sex: Male

DRUGS (4)
  1. PROGRAF [Suspect]
     Indication: LIVER TRANSPLANT
     Dosage: 6 MG, D,  ORAL
     Route: 048
  2. KALETRA [Suspect]
  3. LAMIVUDINE (LAMIVUDINE) [Concomitant]
  4. ZIDOVUDINE [Concomitant]

REACTIONS (6)
  - BILE DUCT OBSTRUCTION [None]
  - DRUG INTERACTION [None]
  - DRUG LEVEL INCREASED [None]
  - DRUG TOXICITY [None]
  - MENTAL STATUS CHANGES [None]
  - NEUROLOGICAL SYMPTOM [None]
